FAERS Safety Report 13994966 (Version 1)
Quarter: 2017Q3

REPORT INFORMATION
  Report Type: Report from Study
  Country: MX (occurrence: MX)
  Receive Date: 20170921
  Receipt Date: 20170921
  Transmission Date: 20171128
  Serious: Yes (Hospitalization)
  Sender: FDA-Public Use
  Company Number: MX-UCBSA-2017037921

PATIENT
  Age: 9 Year
  Sex: Male
  Weight: 35 kg

DRUGS (2)
  1. LEVETIRACETAM. [Suspect]
     Active Substance: LEVETIRACETAM
     Indication: EPILEPSY
     Dosage: 100MG/ML
     Route: 048
  2. VIMPAT [Suspect]
     Active Substance: LACOSAMIDE
     Indication: EPILEPSY
     Dosage: 50 MG
     Route: 048

REACTIONS (2)
  - Off label use [Unknown]
  - Seizure [Unknown]

NARRATIVE: CASE EVENT DATE: 20170908
